FAERS Safety Report 6534280-3 (Version None)
Quarter: 2010Q1

REPORT INFORMATION
  Report Type: 
  Country: None (occurrence: None)
  Receive Date: 20100112
  Receipt Date: 20100104
  Transmission Date: 20100710
  Serious: Yes (Hospitalization)
  Sender: FDA-Public Use
  Company Number: DE-SANOFI-AVENTIS-2010SA000516

PATIENT
  Age: 49 Year
  Sex: Female
  Weight: 66 kg

DRUGS (3)
  1. QUENSYL [Suspect]
     Indication: RHEUMATOID ARTHRITIS
     Dosage: DAILY DOSE: 2 DF DOSAGE FORM EVERY DAYS
     Route: 048
  2. SYNTESTAN [Concomitant]
     Indication: RHEUMATOID ARTHRITIS
     Dosage: DAILY DOSE: 1 DF DOSAGE FORM EVERY DAYS
     Route: 048
  3. DONA [Concomitant]
     Indication: RHEUMATOID ARTHRITIS
     Dosage: DAILY DOSE: 3 DF DOSAGE FORM EVERY DAYS
     Route: 048

REACTIONS (2)
  - DYSPNOEA [None]
  - HEADACHE [None]
